FAERS Safety Report 4311906-6 (Version None)
Quarter: 2004Q1

REPORT INFORMATION
  Report Type: 
  Country: None (occurrence: None)
  Receive Date: 20040305
  Receipt Date: 20040112
  Transmission Date: 20041129
  Serious: Yes (Death, Hospitalization)
  Sender: FDA-Public Use
  Company Number: PHNU2004DE00489

PATIENT
  Age: 65 Year
  Sex: Male
  Weight: 115 kg

DRUGS (40)
  1. FORADIL [Suspect]
     Indication: CHRONIC OBSTRUCTIVE AIRWAYS DISEASE
     Dosage: MORE THAN ONCE DAILY
     Dates: start: 20010720
  2. CIBACEN [Suspect]
     Indication: CARDIAC FAILURE
     Dosage: 5 MG/DAY
     Route: 048
     Dates: start: 20010726
  3. MUCRET [Suspect]
     Dosage: 1 DF, BID
     Route: 048
     Dates: end: 20010720
  4. UNIPHYLLIN ^MUNDIPHARMA^ [Suspect]
     Indication: CHRONIC OBSTRUCTIVE AIRWAYS DISEASE
     Dosage: 100MG-0MG-200MG
     Route: 048
     Dates: end: 20010720
  5. BAMBEC [Suspect]
     Indication: CHRONIC OBSTRUCTIVE AIRWAYS DISEASE
     Dosage: 10MG/DAY
     Route: 048
     Dates: end: 20010720
  6. SEREVENT [Suspect]
     Indication: CHRONIC OBSTRUCTIVE AIRWAYS DISEASE
     Dosage: 4 SPRAYS/DAILY
     Dates: end: 20010720
  7. JUNIK [Suspect]
     Indication: CHRONIC OBSTRUCTIVE AIRWAYS DISEASE
     Dosage: 4 SPRAYS/DAILY
     Dates: end: 20010720
  8. DECORTIN [Suspect]
     Indication: CHRONIC OBSTRUCTIVE AIRWAYS DISEASE
     Dosage: 5MG/DAY
     Route: 048
     Dates: end: 20010720
  9. ISOPTIN TAB [Suspect]
     Indication: TACHYCARDIA
     Dosage: 240MG-0MG-0MG
     Route: 048
     Dates: end: 20010720
  10. ISOPTIN TAB [Suspect]
     Dosage: 120MG-120MG-120MG
     Route: 048
     Dates: start: 20010725
  11. SAROTEN ^BAYER VITAL^ [Suspect]
     Dosage: 10MG-10MG-25MG
  12. VIGANTOLETTEN ^MERCK^ [Suspect]
     Indication: VITAMIN D DEFICIENCY
     Dosage: 1 DF, QD
     Route: 048
  13. DIAZEPAM [Suspect]
     Indication: AGITATION
     Dosage: 5 MG, ONCE/SINGLE
     Route: 042
     Dates: start: 20010720, end: 20010720
  14. CIPROBAY [Suspect]
     Indication: INFECTION
     Dosage: 1 DF, BID
     Dates: start: 20010720, end: 20010724
  15. LASIX [Suspect]
     Indication: RENAL FAILURE
     Dosage: 1 AMP/INJECTION
     Route: 042
     Dates: start: 20010720, end: 20010720
  16. LASIX [Suspect]
     Dosage: 1 AMP/INJECTION
     Route: 065
     Dates: start: 20010725, end: 20010725
  17. ALT-INSULIN [Suspect]
     Indication: DIABETES MELLITUS
     Dosage: UNKNOWN
     Route: 058
     Dates: start: 20010720
  18. ACC [Suspect]
     Indication: PRODUCTIVE COUGH
     Dosage: 600MG/DAY
     Route: 048
     Dates: start: 20010720
  19. ATROVENT [Suspect]
     Indication: CHRONIC OBSTRUCTIVE AIRWAYS DISEASE
     Dosage: MORE THAN ONCE DAILY
     Dates: start: 20010720
  20. BRONCHORETARD [Suspect]
     Indication: CHRONIC OBSTRUCTIVE AIRWAYS DISEASE
     Dosage: 350MG/DAY
     Route: 048
     Dates: start: 20010720
  21. BRONCHOSPASMIN [Suspect]
     Indication: CHRONIC OBSTRUCTIVE AIRWAYS DISEASE
     Dosage: UNKNOWN
     Route: 042
     Dates: start: 20010720
  22. SOLU-DECORTIN-H [Suspect]
     Indication: CHRONIC OBSTRUCTIVE AIRWAYS DISEASE
     Dosage: 10MG-0MG-50MG
     Route: 042
     Dates: start: 20010720
  23. PANTOZOL #AT [Suspect]
     Indication: PROPHYLAXIS OF NAUSEA AND VOMITING
     Dosage: 40 MG, QD
     Route: 048
     Dates: start: 20010720
  24. CALCIUM [Concomitant]
     Dosage: 1 DF, QD
     Route: 048
     Dates: start: 20010720
  25. RINGER [Concomitant]
     Indication: HYPOVOLAEMIA
     Dosage: 500ML/DAY
     Route: 042
     Dates: start: 20010720
  26. LEFAX [Suspect]
     Indication: FLATULENCE
     Dosage: UNKNOWN
     Route: 048
     Dates: start: 20010721, end: 20010721
  27. ZYLORIC ^FRESENIUS^ [Suspect]
     Indication: HYPERURICAEMIA
     Dosage: 300 MG, QD
     Route: 048
     Dates: start: 20010721
  28. KALINOR [Concomitant]
     Indication: HYPOKALAEMIA
     Dosage: 1 DF, QD
     Route: 048
     Dates: start: 20030721
  29. NITRO [Suspect]
     Indication: CARDIAC ASTHMA
     Dosage: 50 MG, QD
     Route: 042
     Dates: start: 20010723, end: 20010724
  30. HEPARIN [Suspect]
     Indication: THROMBOSIS PROPHYLAXIS
     Dosage: 2500 IU/DAY
     Route: 042
     Dates: start: 20010723
  31. NORVASC [Suspect]
     Indication: HYPERTENSION
     Dosage: 10 MG/DAY
     Dates: start: 20010723
  32. VOLMAC [Suspect]
     Indication: CHRONIC OBSTRUCTIVE AIRWAYS DISEASE
     Dosage: 8MG/DAY
     Route: 048
     Dates: start: 20010723
  33. UNAT [Suspect]
     Indication: OEDEMA DUE TO CARDIAC DISEASE
     Dosage: 10 MG, QD
     Route: 048
     Dates: start: 20010723
  34. BIFITERAL ^SOLVAY ARZNEIMITTEL^ [Suspect]
     Indication: CONSTIPATION
     Dosage: 20 ML, ONCE/SINGLE
     Route: 048
     Dates: start: 20010724, end: 20010724
  35. AQUAPHOR TABLET [Suspect]
     Indication: OEDEMA DUE TO CARDIAC DISEASE
     Dosage: 1 DF, QD
     Route: 048
     Dates: start: 20010724
  36. POTASSIUM CHLORIDE [Concomitant]
     Indication: HYPOKALAEMIA
     Dosage: 1 DF, ONCE/SINGLE
     Route: 042
     Dates: start: 20010725, end: 20010725
  37. ASPIRIN [Suspect]
     Indication: THROMBOSIS PROPHYLAXIS
     Dosage: 1 DF, QD
     Route: 048
     Dates: start: 20010725
  38. SORTIS ^GOEDECKE^ [Suspect]
     Indication: HYPERLIPIDAEMIA
     Dosage: 10 MG, QD
     Route: 048
     Dates: start: 20010725
  39. BISACODYL [Suspect]
     Indication: CONSTIPATION
     Dosage: 1 DF, ONCE/SINGLE
     Route: 054
     Dates: start: 20010727, end: 20010727
  40. ATOSIL [Concomitant]
     Indication: SLEEP APNOEA SYNDROME
     Dosage: 30 DF, ONCE/SINGLE
     Route: 048
     Dates: start: 20010731, end: 20010731

REACTIONS (29)
  - AGITATION [None]
  - BLOOD CREATININE INCREASED [None]
  - C-REACTIVE PROTEIN INCREASED [None]
  - CARDIAC ASTHMA [None]
  - CARDIAC FAILURE [None]
  - CHRONIC OBSTRUCTIVE AIRWAYS DISEASE EXACERBATED [None]
  - CONSTIPATION [None]
  - DIABETES MELLITUS [None]
  - EXANTHEM [None]
  - FLATULENCE [None]
  - GENERAL PHYSICAL HEALTH DETERIORATION [None]
  - HYPERLIPIDAEMIA [None]
  - HYPERTENSION [None]
  - HYPERURICAEMIA [None]
  - HYPOKALAEMIA [None]
  - INFECTION [None]
  - LEUKOCYTOSIS [None]
  - MUCOSAL EROSION [None]
  - NIKOLSKY'S SIGN [None]
  - OEDEMA DUE TO CARDIAC DISEASE [None]
  - PNEUMONIA [None]
  - PYREXIA [None]
  - RASH VESICULAR [None]
  - RENAL FAILURE [None]
  - RESPIRATORY FAILURE [None]
  - SEPTIC SHOCK [None]
  - SHOCK [None]
  - SKIN DISORDER [None]
  - TOXIC EPIDERMAL NECROLYSIS [None]
